FAERS Safety Report 25585964 (Version 1)
Quarter: 2025Q3

REPORT INFORMATION
  Report Type: Spontaneous
  Country: US (occurrence: None)
  Receive Date: 20250719
  Receipt Date: 20250719
  Transmission Date: 20251021
  Serious: Yes (Hospitalization)
  Sender: FDA-CTU
  Company Number: None

PATIENT
  Age: 47 Year
  Sex: Female
  Weight: 60 kg

DRUGS (1)
  1. PAROMOMYCIN SULFATE [Suspect]
     Active Substance: PAROMOMYCIN SULFATE
     Indication: Diarrhoea
     Dates: end: 20250719

REACTIONS (2)
  - Anal ulcer [None]
  - Acne [None]

NARRATIVE: CASE EVENT DATE: 20250107
